FAERS Safety Report 8251401-5 (Version None)
Quarter: 2012Q2

REPORT INFORMATION
  Report Type: 
  Country: None (occurrence: None)
  Receive Date: 20120402
  Receipt Date: 20120326
  Transmission Date: 20120825
  Serious: Yes (Hospitalization)
  Sender: FDA-Public Use
  Company Number: US-PFIZER INC-2012049733

PATIENT
  Sex: Female
  Weight: 107 kg

DRUGS (9)
  1. ATENOLOL [Concomitant]
     Dosage: 25 MG, 1X/DAY
  2. PRILOSEC [Concomitant]
     Dosage: 20 MG, UNK
  3. AMITIZA [Concomitant]
     Dosage: 8 UG, UNK
  4. PRAVASTATIN [Concomitant]
     Dosage: 20 MG, UNK
  5. LISINOPRIL [Suspect]
     Dosage: UNK
  6. HYDROCHLOROTHIAZIDE [Concomitant]
     Dosage: UNK
  7. CELEBREX [Suspect]
     Indication: ARTHRITIS
     Dosage: 200 MG, 2X/DAY
     Route: 048
  8. FENOFIBRATE [Concomitant]
     Dosage: 160 MG, UNK
  9. HYDROCODONE [Concomitant]
     Dosage: UNK

REACTIONS (8)
  - SCIATICA [None]
  - PAIN [None]
  - ARTHROPATHY [None]
  - RENAL DISORDER [None]
  - SINUSITIS [None]
  - BURSITIS [None]
  - MUSCLE SPASMS [None]
  - DYSPHONIA [None]
